FAERS Safety Report 6766357-1 (Version None)
Quarter: 2010Q2

REPORT INFORMATION
  Report Type: 
  Country: None (occurrence: None)
  Receive Date: 20100611
  Receipt Date: 20100530
  Transmission Date: 20101027
  Serious: Yes (Other)
  Sender: FDA-Public Use
  Company Number: PHHY2010US35670

PATIENT
  Sex: Female

DRUGS (3)
  1. ZOMETA [Suspect]
  2. RADIOTHERAPY [Concomitant]
  3. STEROIDS [Concomitant]

REACTIONS (3)
  - MUSCULOSKELETAL PAIN [None]
  - NEURALGIA [None]
  - SCIATICA [None]
